FAERS Safety Report 10241802 (Version 1)
Quarter: 2014Q2

REPORT INFORMATION
  Report Type: Spontaneous
  Country: DE (occurrence: DE)
  Receive Date: 20140617
  Receipt Date: 20140617
  Transmission Date: 20141212
  Serious: Yes (Other)
  Sender: FDA-Public Use
  Company Number: DE-BAYER-2014-086857

PATIENT
  Sex: Female
  Weight: 106 kg

DRUGS (7)
  1. BETAFERON [Suspect]
     Indication: RELAPSING-REMITTING MULTIPLE SCLEROSIS
     Dosage: UNK
     Route: 058
     Dates: start: 20120713, end: 201306
  2. EXTAVIA [Concomitant]
     Indication: RELAPSING-REMITTING MULTIPLE SCLEROSIS
  3. IBUPROFEN [Concomitant]
     Dosage: UNK
     Dates: start: 200707
  4. GLIMEPIRIDE [Concomitant]
     Dosage: UNK
     Dates: start: 201006
  5. JANUVIA [Concomitant]
     Dosage: UNK
     Dates: start: 201006
  6. LANTUS [Concomitant]
     Dosage: UNK
     Dates: start: 20111114
  7. ARLEVERT [Concomitant]
     Dosage: UNK
     Dates: start: 20120913, end: 201306

REACTIONS (1)
  - Multiple sclerosis relapse [Recovered/Resolved]
